FAERS Safety Report 15979961 (Version 1)
Quarter: 2019Q1

REPORT INFORMATION
  Report Type: Spontaneous
  Country: US (occurrence: US)
  Receive Date: 20190124
  Receipt Date: 20190124
  Transmission Date: 20190418
  Serious: No
  Sender: FDA-Public Use
  Company Number: None

PATIENT
  Age: 62 Year
  Sex: Male

DRUGS (1)
  1. ARZERRA [Suspect]
     Active Substance: OFATUMUMAB
     Route: 042
     Dates: start: 201805

REACTIONS (3)
  - Infection [None]
  - Disease recurrence [None]
  - Paralysis [None]

NARRATIVE: CASE EVENT DATE: 20180530
